FAERS Safety Report 8060062 (Version 3)
Quarter: 2013Q1

REPORT INFORMATION
  Report Type: Spontaneous
  Country: US (occurrence: None)
  Receive Date: 20110718
  Receipt Date: 20130222
  Transmission Date: 20140127
  Serious: Yes (Death, Hospitalization, Other)
  Sender: FDA-Public Use
  Company Number: ACO_25585_2011

PATIENT
  Age: 76 Year
  Sex: Female
  Weight: 100.2 kg

DRUGS (14)
  1. AMPYRA [Suspect]
     Indication: DYSPHONIA
     Dosage: 10 MG, BID, ORAL
     Route: 048
     Dates: start: 20110612
  2. AMPYRA [Suspect]
     Indication: DYSPHAGIA
     Dosage: 10 MG, BID, ORAL
     Route: 048
     Dates: start: 20110612
  3. BACLOFEN [Concomitant]
  4. AMANTADINE HYDROCHLORIDE [Concomitant]
  5. ASPIRIN (ACETYLSALICYLIC ACID) [Concomitant]
  6. LASIX [Concomitant]
  7. CELEXA [Concomitant]
  8. VITAMIN C    /00008001/ (ASCORBIC ACID) [Concomitant]
  9. CRANBERRY    /01512301/ (VACCINIUM MACROCARPON) TABLET [Concomitant]
  10. CALCIUM + VITAMIN D (CALCIUM CARBONATE, COLECALCIFEROL) [Concomitant]
  11. TYLENOL    /00020001/ (PARACETAMOL) [Concomitant]
  12. ZYRTEC [Concomitant]
  13. MUCINEX [Concomitant]
  14. SIMETHICONE (SIMETICONE) [Concomitant]

REACTIONS (3)
  - Pulmonary embolism [None]
  - Hypoxia [None]
  - Convulsion [None]
